FAERS Safety Report 12215179 (Version 1)
Quarter: 2016Q1

REPORT INFORMATION
  Report Type: Spontaneous
  Country: US (occurrence: US)
  Receive Date: 20160328
  Receipt Date: 20160328
  Transmission Date: 20160526
  Serious: Yes (Death)
  Sender: FDA-Public Use
  Company Number: US-OTSUKA-2016_006779

PATIENT
  Age: 82 Year
  Sex: Male

DRUGS (1)
  1. SAMSCA [Suspect]
     Active Substance: TOLVAPTAN
     Indication: ILL-DEFINED DISORDER
     Dosage: 30 MG, BIW (EVERY 3 DAYS)
     Route: 048
     Dates: start: 20140807, end: 20151123

REACTIONS (3)
  - Cardiac failure congestive [Fatal]
  - Inappropriate schedule of drug administration [Unknown]
  - Incorrect drug administration duration [Unknown]

NARRATIVE: CASE EVENT DATE: 20140807
